FAERS Safety Report 8151906-1 (Version None)
Quarter: 2012Q1

REPORT INFORMATION
  Report Type: 
  Country: None (occurrence: None)
  Receive Date: 20120214
  Receipt Date: 20120131
  Transmission Date: 20120608
  Serious: Yes (Other)
  Sender: FDA-Public Use
  Company Number: FK201200320

PATIENT
  Age: 50 Year
  Sex: Male

DRUGS (2)
  1. CISPLATIN [Suspect]
     Indication: NON-SMALL CELL LUNG CANCER METASTATIC
  2. PEMETREXED [Suspect]
     Indication: NON-SMALL CELL LUNG CANCER METASTATIC

REACTIONS (2)
  - BLOOD BLISTER [None]
  - TOXIC EPIDERMAL NECROLYSIS [None]
